FAERS Safety Report 8216225-3 (Version None)
Quarter: 2012Q1

REPORT INFORMATION
  Report Type: 
  Country: None (occurrence: None)
  Receive Date: 20120316
  Receipt Date: 20120216
  Transmission Date: 20120608
  Serious: Yes (Life-Threatening, Disabling)
  Sender: FDA-Public Use
  Company Number: FR-GLAXOSMITHKLINE-B0788863A

PATIENT
  Sex: Male

DRUGS (7)
  1. BORTEZOMIB [Suspect]
     Indication: PRODUCT USED FOR UNKNOWN INDICATION
     Route: 042
     Dates: start: 20071001, end: 20071201
  2. ALLOPURINOL [Concomitant]
     Dosage: 300MG PER DAY
     Route: 048
     Dates: start: 20080901
  3. NEURONTIN [Concomitant]
     Dosage: 600MG TWICE PER DAY
     Route: 048
  4. LENOGRASTIM [Suspect]
     Indication: PRODUCT USED FOR UNKNOWN INDICATION
     Route: 065
     Dates: start: 20080101, end: 20080101
  5. CLONAZEPAM [Concomitant]
     Indication: PARAESTHESIA
  6. ALKERAN [Suspect]
     Indication: PRODUCT USED FOR UNKNOWN INDICATION
     Dosage: 400MG PER DAY
     Route: 042
     Dates: start: 20080212, end: 20080212
  7. DEXAMETHASONE [Concomitant]
     Route: 048

REACTIONS (6)
  - PLEURAL EFFUSION [None]
  - HERPES ZOSTER [None]
  - ACUTE LYMPHOCYTIC LEUKAEMIA [None]
  - STEM CELL TRANSPLANT [None]
  - SURGICAL PROCEDURE REPEATED [None]
  - ASPERGILLUS TEST POSITIVE [None]
